FAERS Safety Report 6797732-7 (Version None)
Quarter: 2010Q2

REPORT INFORMATION
  Report Type: 
  Country: None (occurrence: None)
  Receive Date: 20100623
  Receipt Date: 20100611
  Transmission Date: 20101027
  Serious: Yes (Hospitalization)
  Sender: FDA-Public Use
  Company Number: 232311J09USA

PATIENT
  Age: 56 Year
  Sex: Female

DRUGS (1)
  1. REBIF [Suspect]
     Indication: DRUG USE FOR UNKNOWN INDICATION
     Dosage: 44 MCG, 3 IN 1 WK, SUBCUTANEOUS
     Route: 058
     Dates: start: 20090513

REACTIONS (7)
  - HEADACHE [None]
  - HYPOAESTHESIA [None]
  - INFLUENZA LIKE ILLNESS [None]
  - INJECTION SITE REACTION [None]
  - NUCLEAR MAGNETIC RESONANCE IMAGING ABNORMAL [None]
  - PNEUMONIA [None]
  - SPEECH DISORDER [None]
